FAERS Safety Report 16941583 (Version 2)
Quarter: 2019Q4

REPORT INFORMATION
  Report Type: Spontaneous
  Country: DE (occurrence: DE)
  Receive Date: 20191021
  Receipt Date: 20191105
  Transmission Date: 20200122
  Serious: Yes (Other)
  Sender: FDA-Public Use
  Company Number: DE-CELGENEUS-DEU-20190606616

PATIENT
  Age: 77 Year
  Sex: Female
  Weight: 55.5 kg

DRUGS (4)
  1. ASA [Concomitant]
     Active Substance: ASPIRIN
     Indication: THROMBOSIS PROPHYLAXIS
     Dosage: 100 MILLIGRAM
     Route: 065
  2. REVLIMID [Suspect]
     Active Substance: LENALIDOMIDE
     Indication: MYELODYSPLASTIC SYNDROME
     Dosage: 10 MILLIGRAM
     Route: 048
     Dates: start: 20180531
  3. REVLIMID [Suspect]
     Active Substance: LENALIDOMIDE
     Indication: OFF LABEL USE
     Dosage: 7.5 MILLIGRAM
     Route: 048
     Dates: start: 20190528
  4. ALENDRONIC ACID [Concomitant]
     Active Substance: ALENDRONIC ACID
     Indication: OSTEOPOROSIS
     Dosage: 10 MILLIGRAM
     Route: 065

REACTIONS (15)
  - Vertigo [Not Recovered/Not Resolved]
  - Arthralgia [Unknown]
  - Myalgia [Unknown]
  - Arthralgia [Unknown]
  - Skin mass [Unknown]
  - Bone pain [Not Recovered/Not Resolved]
  - Rash pruritic [Unknown]
  - Rash pruritic [Recovering/Resolving]
  - Rash [Not Recovered/Not Resolved]
  - Insomnia [Not Recovered/Not Resolved]
  - Myalgia [Recovering/Resolving]
  - Contusion [Unknown]
  - Diarrhoea [Not Recovered/Not Resolved]
  - Urticaria [Recovering/Resolving]
  - Pain in extremity [Unknown]

NARRATIVE: CASE EVENT DATE: 201806
